FAERS Safety Report 6042535-4 (Version None)
Quarter: 2009Q1

REPORT INFORMATION
  Report Type: 
  Country: None (occurrence: None)
  Receive Date: 20090118
  Receipt Date: 20051222
  Transmission Date: 20090719
  Serious: Yes (Disabling, Other)
  Sender: FDA-Public Use
  Company Number: IL-PFIZER INC-2008159919

PATIENT

DRUGS (5)
  1. CELECOXIB [Suspect]
     Dosage: 400 MG, 1X/DAY
     Route: 048
     Dates: start: 20010820, end: 20021015
  2. NORMACOL [Concomitant]
     Dosage: UNK
  3. DOXAZOSIN [Concomitant]
     Dosage: UNK
  4. FAMOTIDINE [Concomitant]
     Dosage: UNK
  5. PLAVIX [Concomitant]
     Dosage: UNK

REACTIONS (1)
  - RETINAL VEIN THROMBOSIS [None]
